FAERS Safety Report 4528845-8 (Version None)
Quarter: 2004Q4

REPORT INFORMATION
  Report Type: 
  Country: None (occurrence: None)
  Receive Date: 20041215
  Receipt Date: 20041215
  Transmission Date: 20050328
  Serious: Yes (Life-Threatening, Hospitalization)
  Sender: FDA-Public Use
  Company Number: None

PATIENT
  Age: 62 Year
  Sex: Male
  Weight: 114.3 kg

DRUGS (5)
  1. ALLOPURINOL [Suspect]
     Indication: GOUT
     Dosage: 300 MG PO DAILY
     Route: 048
  2. ALLOPURINOL [Suspect]
     Indication: PROPHYLAXIS
     Dosage: 300 MG PO DAILY
     Route: 048
  3. CYTARABINE [Suspect]
     Indication: ACUTE MYELOID LEUKAEMIA
     Dosage: ?- CONTINOUS PUMP
  4. KYTRIL [Concomitant]
  5. ACETAMINOPHEN [Concomitant]

REACTIONS (7)
  - ASTHENIA [None]
  - BLOOD PRESSURE SYSTOLIC DECREASED [None]
  - CATHETER SEPSIS [None]
  - NAUSEA [None]
  - PYREXIA [None]
  - RASH [None]
  - VOMITING [None]
